FAERS Safety Report 19994429 (Version 1)
Quarter: 2021Q4

REPORT INFORMATION
  Report Type: Spontaneous
  Country: US (occurrence: US)
  Receive Date: 20211025
  Receipt Date: 20211025
  Transmission Date: 20220303
  Serious: Yes (Hospitalization)
  Sender: FDA-Public Use
  Company Number: None

PATIENT
  Sex: Female
  Weight: 83.46 kg

DRUGS (16)
  1. BOSULIF [Suspect]
     Active Substance: BOSUTINIB MONOHYDRATE
     Route: 048
  2. ASPIRIN [Concomitant]
     Active Substance: ASPIRIN
  3. ATORVASTATIN [Concomitant]
     Active Substance: ATORVASTATIN
  4. BISOPROLOL [Concomitant]
     Active Substance: BISOPROLOL
  5. VITAMIN D [Concomitant]
     Active Substance: VITAMIN D NOS
  6. CLOPIDOGREL [Concomitant]
     Active Substance: CLOPIDOGREL BISULFATE
  7. OLMESARTAN [Concomitant]
     Active Substance: OLMESARTAN
  8. ONDANSETRON [Concomitant]
     Active Substance: ONDANSETRON
  9. OXYBUTYNIN. [Concomitant]
     Active Substance: OXYBUTYNIN CHLORIDE
  10. PANTOPRAZOLE [Concomitant]
     Active Substance: PANTOPRAZOLE
  11. DILTIAZEM [Concomitant]
     Active Substance: DILTIAZEM
  12. GABAPENTIN [Concomitant]
     Active Substance: GABAPENTIN
  13. METFORMIN [Concomitant]
     Active Substance: METFORMIN HYDROCHLORIDE
  14. NITROFURANTOIN [Concomitant]
     Active Substance: NITROFURANTOIN
  15. MYRBETRIQ [Concomitant]
     Active Substance: MIRABEGRON
  16. ELIQUIS [Concomitant]
     Active Substance: APIXABAN

REACTIONS (1)
  - Renal disorder [None]
